FAERS Safety Report 23220801 (Version 1)
Quarter: 2023Q4

REPORT INFORMATION
  Report Type: Report from Study
  Country: US (occurrence: US)
  Receive Date: 20231123
  Receipt Date: 20231123
  Transmission Date: 20240109
  Serious: Yes (Hospitalization, Other)
  Sender: FDA-Public Use
  Company Number: US-JNJFOC-20220928667

PATIENT
  Sex: Female

DRUGS (10)
  1. EPOPROSTENOL SODIUM [Suspect]
     Active Substance: EPOPROSTENOL SODIUM
     Indication: Pulmonary hypertension
     Dosage: VELETRI 1.5MG VIAL INTRAVENOUS CONTINUOUS
     Route: 042
     Dates: start: 202209
  2. EPOPROSTENOL SODIUM [Suspect]
     Active Substance: EPOPROSTENOL SODIUM
     Route: 042
  3. EPOPROSTENOL SODIUM [Suspect]
     Active Substance: EPOPROSTENOL SODIUM
     Route: 042
  4. EPOPROSTENOL SODIUM [Suspect]
     Active Substance: EPOPROSTENOL SODIUM
     Route: 042
  5. EPOPROSTENOL SODIUM [Suspect]
     Active Substance: EPOPROSTENOL SODIUM
     Route: 042
  6. EPOPROSTENOL SODIUM [Suspect]
     Active Substance: EPOPROSTENOL SODIUM
     Route: 042
  7. EPOPROSTENOL SODIUM [Suspect]
     Active Substance: EPOPROSTENOL SODIUM
     Dosage: EXPIRY: 30-APR-2025
     Route: 042
  8. MACITENTAN [Suspect]
     Active Substance: MACITENTAN
     Indication: Product used for unknown indication
     Route: 048
     Dates: start: 202209
  9. SILDENAFIL [Suspect]
     Active Substance: SILDENAFIL
     Indication: Product used for unknown indication
     Route: 065
  10. JARDIANCE [Suspect]
     Active Substance: EMPAGLIFLOZIN
     Indication: Product used for unknown indication
     Route: 065

REACTIONS (36)
  - Pain in jaw [Not Recovered/Not Resolved]
  - Breast cancer [Unknown]
  - Hypersensitivity [Unknown]
  - Cardiac failure congestive [Unknown]
  - Pneumonia [Unknown]
  - Blood pressure decreased [Unknown]
  - Anaemia [Unknown]
  - Device occlusion [Unknown]
  - Diarrhoea [Unknown]
  - Flushing [Unknown]
  - Headache [Unknown]
  - Dizziness [Unknown]
  - Nausea [Unknown]
  - Decreased appetite [Unknown]
  - Hypersomnia [Unknown]
  - Back pain [Unknown]
  - Vomiting [Unknown]
  - Visual impairment [Unknown]
  - Constipation [Unknown]
  - Fatigue [Unknown]
  - Productive cough [Unknown]
  - Night sweats [Unknown]
  - Feeling cold [Unknown]
  - Pyrexia [Unknown]
  - Pain [Unknown]
  - Mastitis [Unknown]
  - Muscular weakness [Recovered/Resolved]
  - COVID-19 [Unknown]
  - Fluid retention [Unknown]
  - Wound infection [Unknown]
  - Eating disorder [Unknown]
  - Weight decreased [Unknown]
  - Device occlusion [Unknown]
  - Underdose [Unknown]
  - Drug delivery system malfunction [Unknown]
  - Product administration interrupted [Unknown]

NARRATIVE: CASE EVENT DATE: 20220101
